FAERS Safety Report 13527499 (Version 1)
Quarter: 2017Q2

REPORT INFORMATION
  Report Type: Spontaneous
  Country: US (occurrence: US)
  Receive Date: 20170509
  Receipt Date: 20170509
  Transmission Date: 20170830
  Serious: Yes (Life-Threatening, Disabling)
  Sender: FDA-Public Use
  Company Number: None

PATIENT
  Age: 51 Year
  Sex: Female
  Weight: 57.2 kg

DRUGS (12)
  1. MAGNESIUM [Concomitant]
     Active Substance: MAGNESIUM
  2. ACE [Concomitant]
  3. ZINC. [Concomitant]
     Active Substance: ZINC
  4. VITAMIN E [Concomitant]
     Active Substance: .ALPHA.-TOCOPHEROL
  5. VITAMIN C [Concomitant]
     Active Substance: ASCORBIC ACID
  6. VITAMIN A [Concomitant]
     Active Substance: VITAMIN A
  7. COQ10 [Concomitant]
     Active Substance: UBIDECARENONE
  8. A/A [Concomitant]
  9. PROBIOTIC [Concomitant]
     Active Substance: PROBIOTICS NOS
  10. ATOVAQUONE AND PROQUANIL [Suspect]
     Active Substance: ATOVAQUONE\PROGUANIL
     Indication: MALARIA PROPHYLAXIS
     Route: 048
     Dates: start: 20160422, end: 20160521
  11. DMPS [Concomitant]
  12. VIT B [Concomitant]
     Active Substance: VITAMIN B

REACTIONS (12)
  - Noninfective encephalitis [None]
  - Eating disorder [None]
  - Parosmia [None]
  - Hallucination [None]
  - Weight decreased [None]
  - Tachyphrenia [None]
  - Crying [None]
  - Unevaluable event [None]
  - Fatigue [None]
  - Panic attack [None]
  - Mood swings [None]
  - Feeling abnormal [None]

NARRATIVE: CASE EVENT DATE: 201404
